FAERS Safety Report 8988757 (Version 4)
Quarter: 2013Q1

REPORT INFORMATION
  Report Type: Spontaneous
  Country: JP (occurrence: JP)
  Receive Date: 20121228
  Receipt Date: 20130128
  Transmission Date: 20140127
  Serious: Yes (Hospitalization)
  Sender: FDA-Public Use
  Company Number: JP-VERTEX PHARMACEUTICALS INC.-2012-026685

PATIENT
  Age: 62 Year
  Sex: Male

DRUGS (7)
  1. TELAVIC [Suspect]
     Indication: CHRONIC HEPATITIS C
     Dosage: 2250 MG, QD
     Route: 048
     Dates: start: 20121119, end: 20121202
  2. RIBAVIRIN [Concomitant]
     Dosage: 800 MG, QD
     Route: 048
     Dates: end: 20121202
  3. PEGINTERFERON ALFA-2B [Concomitant]
     Dosage: 1.3 ?G/KG, QW
     Route: 058
     Dates: end: 20121126
  4. ADALAT CR [Concomitant]
     Dosage: 20 MG, QD
     Route: 048
  5. DIOVAN [Concomitant]
     Dosage: 80 MG,QD
     Route: 048
     Dates: end: 20121202
  6. SELBEX [Concomitant]
     Dosage: 150 MG, QD
     Route: 048
     Dates: start: 20121130
  7. TAKEPRON [Concomitant]
     Dosage: 15 MG, QD
     Route: 048
     Dates: start: 20121130

REACTIONS (5)
  - Renal disorder [Recovered/Resolved]
  - Decreased appetite [Recovered/Resolved]
  - Nausea [Recovered/Resolved]
  - Vomiting [Recovered/Resolved]
  - Diarrhoea [Recovered/Resolved]
